FAERS Safety Report 13428095 (Version 2)
Quarter: 2017Q2

REPORT INFORMATION
  Report Type: Spontaneous
  Country: FI (occurrence: FI)
  Receive Date: 20170411
  Receipt Date: 20170606
  Transmission Date: 20170830
  Serious: Yes (Hospitalization)
  Sender: FDA-Public Use
  Company Number: FI-ABBVIE-17K-055-1938231-00

PATIENT
  Age: 42 Year
  Sex: Male
  Weight: 89 kg

DRUGS (3)
  1. HUMIRA [Suspect]
     Active Substance: ADALIMUMAB
     Indication: PSORIASIS
     Route: 058
     Dates: start: 20160915, end: 20161214
  2. CARDACE [Concomitant]
     Active Substance: RAMIPRIL
     Indication: HYPERTENSION
     Route: 048
     Dates: start: 20150924, end: 20170102
  3. LANTUS [Concomitant]
     Active Substance: INSULIN GLARGINE
     Indication: TYPE 2 DIABETES MELLITUS
     Route: 058
     Dates: start: 20150725, end: 20170103

REACTIONS (16)
  - Respiratory symptom [Recovered/Resolved]
  - Myalgia [Recovered/Resolved]
  - Staphylococcal sepsis [Recovered/Resolved]
  - Aspartate aminotransferase increased [Unknown]
  - Left ventricular hypertrophy [Unknown]
  - Staphylococcal abscess [Recovered/Resolved]
  - Blood glucose increased [Unknown]
  - Haemoglobin decreased [Unknown]
  - Cardiomegaly [Unknown]
  - Monocyte count increased [Unknown]
  - Bilirubin conjugated increased [Unknown]
  - Lymphocyte count decreased [Unknown]
  - Pneumonia staphylococcal [Recovered/Resolved]
  - Blood alkaline phosphatase increased [Unknown]
  - Protein total decreased [Unknown]
  - Blood lactate dehydrogenase increased [Unknown]

NARRATIVE: CASE EVENT DATE: 20161224
